FAERS Safety Report 6904509-8 (Version None)
Quarter: 2010Q3

REPORT INFORMATION
  Report Type: 
  Country: None (occurrence: None)
  Receive Date: 20100804
  Receipt Date: 20090602
  Transmission Date: 20110219
  Serious: No
  Sender: FDA-Public Use
  Company Number: US-PFIZER INC-2009191069

PATIENT
  Sex: Female

DRUGS (8)
  1. LYRICA [Suspect]
     Indication: NEURALGIA
     Dosage: 50 MG, 2X/DAY
     Dates: start: 20090327
  2. HYZAAR [Concomitant]
     Dosage: 100/25 MG DAILY
  3. ADALAT [Concomitant]
     Dosage: 90 MG, 1X/DAY
  4. SYNTHROID [Concomitant]
     Dosage: UNK
  5. NEXIUM [Concomitant]
     Dosage: 40 MG, ALTERNATE DAY
  6. INDERAL [Concomitant]
     Dosage: 5 MG, 2X/DAY
  7. MEDROL [Concomitant]
     Dosage: 3 MG, 2X/DAY
  8. MONTELUKAST [Concomitant]
     Dosage: 5 MG, 1X/DAY

REACTIONS (2)
  - DEPRESSION [None]
  - PAIN [None]
